FAERS Safety Report 22041504 (Version 2)
Quarter: 2023Q4

REPORT INFORMATION
  Report Type: Report from Study
  Country: IT (occurrence: IT)
  Receive Date: 20230227
  Receipt Date: 20231006
  Transmission Date: 20240109
  Serious: Yes (Death, Hospitalization, Disabling)
  Sender: FDA-Public Use
  Company Number: IT-SERVIER-S23001414

PATIENT
  Age: 75 Year
  Sex: Male
  Weight: 97 kg

DRUGS (5)
  1. TIPIRACIL HYDROCHLORIDE\TRIFLURIDINE [Suspect]
     Active Substance: TIPIRACIL HYDROCHLORIDE\TRIFLURIDINE
     Indication: Colorectal cancer metastatic
     Dosage: 120 MG, DAILY, (30 MG/M2, BID), ON DAYS 15-19 AND 22-26 OF EACH CYCLE.
     Route: 048
     Dates: start: 20221021, end: 20230110
  2. BEVACIZUMAB [Suspect]
     Active Substance: BEVACIZUMAB
     Indication: Colorectal cancer metastatic
     Dosage: 520 MG TOTAL DOSAGE
     Route: 042
     Dates: start: 20221007
  3. BEVACIZUMAB [Suspect]
     Active Substance: BEVACIZUMAB
     Dosage: 470 MG TOTAL DOSAGE
     Route: 042
     Dates: end: 20221230
  4. CAPECITABINE [Suspect]
     Active Substance: CAPECITABINE
     Indication: Colorectal cancer metastatic
     Dosage: 4000, DAILY, ON DAYS 1-14 OF EACH CYCLE
     Route: 048
     Dates: start: 20221007, end: 20221229
  5. ASPIRIN [Concomitant]
     Active Substance: ASPIRIN
     Indication: Acute myocardial infarction
     Dosage: 100 MG, QD
     Route: 048

REACTIONS (2)
  - Asthenia [Fatal]
  - Decreased appetite [Fatal]

NARRATIVE: CASE EVENT DATE: 20230206
